FAERS Safety Report 6554976-7 (Version None)
Quarter: 2010Q1

REPORT INFORMATION
  Report Type: 
  Country: None (occurrence: None)
  Receive Date: 20100127
  Receipt Date: 20100122
  Transmission Date: 20100710
  Serious: Yes (Death, Hospitalization)
  Sender: FDA-Public Use
  Company Number: US-JNJFOC-20100109878

PATIENT
  Sex: Female
  Weight: 99.11 kg

DRUGS (12)
  1. INVEGA SUSTENNA [Suspect]
     Indication: BIPOLAR DISORDER
     Route: 030
  2. INVEGA SUSTENNA [Suspect]
     Route: 030
  3. SEROQUEL [Concomitant]
  4. LEVOTHYROXINE SODIUM [Concomitant]
  5. DOCUSATE [Concomitant]
  6. TOPROL-XL [Concomitant]
  7. SIMVASTATIN [Concomitant]
  8. LORAZEPAM [Concomitant]
  9. DRISDOL [Concomitant]
  10. XALATAN [Concomitant]
  11. TIMOLOL MALEATE [Concomitant]
  12. BENADRYL [Concomitant]

REACTIONS (2)
  - ADVERSE DRUG REACTION [None]
  - DEATH [None]
